FAERS Safety Report 7595302-4 (Version None)
Quarter: 2011Q3

REPORT INFORMATION
  Report Type: 
  Country: None (occurrence: None)
  Receive Date: 20110707
  Receipt Date: 20110624
  Transmission Date: 20111222
  Serious: Yes (Hospitalization)
  Sender: FDA-Public Use
  Company Number: FR-KINGPHARMUSA00001-K201100757

PATIENT
  Age: 89 Year
  Sex: Female

DRUGS (5)
  1. ALTACE [Suspect]
     Dosage: 5 MG, QD
     Route: 048
     Dates: start: 19950101, end: 20100215
  2. LANOXIN [Suspect]
     Dosage: 1 DF, QD
     Route: 048
     Dates: start: 20000101, end: 20100215
  3. CLONIDINE [Concomitant]
  4. LUVION [Suspect]
     Dosage: .5 DF, QOD
     Route: 048
     Dates: start: 20050101, end: 20100215
  5. LASIX [Concomitant]

REACTIONS (4)
  - BRADYARRHYTHMIA [None]
  - TOXICITY TO VARIOUS AGENTS [None]
  - HYPERKALAEMIA [None]
  - HYPONATRAEMIA [None]
